FAERS Safety Report 5011972-9 (Version None)
Quarter: 2006Q2

REPORT INFORMATION
  Report Type: 
  Country: None (occurrence: None)
  Receive Date: 20060524
  Receipt Date: 20060510
  Transmission Date: 20061013
  Serious: Yes (Other)
  Sender: FDA-Public Use
  Company Number: 2006-BP-05361RO

PATIENT
  Age: 40 Year
  Sex: Female

DRUGS (1)
  1. MEFLOQUINE [Suspect]
     Indication: MALARIA PROPHYLAXIS
     Dosage: 1000 MG COURSE, PO
     Route: 048

REACTIONS (4)
  - DERMATITIS [None]
  - INFECTED SKIN ULCER [None]
  - POLYNEUROPATHY [None]
  - SKIN ULCER [None]
